FAERS Safety Report 12037939 (Version 1)
Quarter: 2016Q1

REPORT INFORMATION
  Report Type: Spontaneous
  Country: US (occurrence: US)
  Receive Date: 20160208
  Receipt Date: 20160208
  Transmission Date: 20160526
  Serious: Yes (Other)
  Sender: FDA-Public Use
  Company Number: US-BAYER-2016-017885

PATIENT
  Sex: Male

DRUGS (1)
  1. CIPRO [Suspect]
     Active Substance: CIPROFLOXACIN HYDROCHLORIDE
     Dosage: UNK
     Dates: start: 2015

REACTIONS (6)
  - Back disorder [None]
  - Tendon disorder [None]
  - Activities of daily living impaired [None]
  - Cardiac disorder [None]
  - Paralysis [None]
  - Hypoacusis [None]
